FAERS Safety Report 19378849 (Version 1)
Quarter: 2021Q2

REPORT INFORMATION
  Report Type: Report from Study
  Country: JP (occurrence: JP)
  Receive Date: 20210606
  Receipt Date: 20210606
  Transmission Date: 20210717
  Serious: Yes (Other)
  Sender: FDA-Public Use
  Company Number: JP-CELLTRION INC.-2020JP024463

PATIENT

DRUGS (7)
  1. CT?P13 [Suspect]
     Active Substance: INFLIXIMAB-DYYB
     Dosage: 300 MILLIGRAM
     Route: 041
     Dates: start: 20190123, end: 20190123
  2. CT?P13 [Suspect]
     Active Substance: INFLIXIMAB-DYYB
     Dosage: 300 UNK
     Route: 041
     Dates: start: 20190320, end: 20190320
  3. CT?P13 [Suspect]
     Active Substance: INFLIXIMAB-DYYB
     Dosage: 315 MILLIGRAM
     Route: 041
     Dates: start: 20191113, end: 20191113
  4. CT?P13 [Suspect]
     Active Substance: INFLIXIMAB-DYYB
     Indication: COLITIS ULCERATIVE
     Dosage: 315 MILLIGRAM
     Route: 041
     Dates: start: 20181128, end: 20181128
  5. CT?P13 [Suspect]
     Active Substance: INFLIXIMAB-DYYB
     Dosage: 300 MILLIGRAM
     Route: 041
     Dates: start: 20201223, end: 20201223
  6. CT?P13 [Suspect]
     Active Substance: INFLIXIMAB-DYYB
     Dosage: 300 MILLIGRAM
     Route: 041
     Dates: start: 20190514, end: 20190514
  7. AZATHIOPRINE. [Concomitant]
     Active Substance: AZATHIOPRINE
     Dosage: 50 MG PER DAY
     Route: 048

REACTIONS (8)
  - Cardiac disorder [Recovered/Resolved]
  - Nasopharyngitis [Recovered/Resolved]
  - Gastrooesophageal reflux disease [Not Recovered/Not Resolved]
  - Nephrolithiasis [Not Recovered/Not Resolved]
  - Off label use [Unknown]
  - Asthma [Not Recovered/Not Resolved]
  - Underdose [Unknown]
  - Dyspepsia [Recovered/Resolved]

NARRATIVE: CASE EVENT DATE: 20190710
